FAERS Safety Report 6770426-X (Version None)
Quarter: 2010Q2

REPORT INFORMATION
  Report Type: 
  Country: None (occurrence: None)
  Receive Date: 20100615
  Receipt Date: 20100603
  Transmission Date: 20101027
  Serious: Yes (Hospitalization)
  Sender: FDA-Public Use
  Company Number: CN-JNJFOC-20100600949

PATIENT
  Age: 3 Year
  Sex: Male
  Weight: 18.5 kg

DRUGS (4)
  1. CHILDREN'S MOTRIN [Suspect]
     Indication: PYREXIA
     Dosage: 100ML:2.0G
     Route: 065
  2. CEPHALOSPORINS [Suspect]
     Indication: COUGH
  3. CEFIXIME [Suspect]
     Indication: DRUG USE FOR UNKNOWN INDICATION
     Route: 065
  4. MUCOSOLVAN [Suspect]
     Indication: PRODUCTIVE COUGH
     Route: 065

REACTIONS (2)
  - ANAPHYLACTIC SHOCK [None]
  - RESPIRATORY TRACT INFECTION [None]
